FAERS Safety Report 12667013 (Version 1)
Quarter: 2016Q3

REPORT INFORMATION
  Report Type: Spontaneous
  Country: US (occurrence: None)
  Receive Date: 20160818
  Receipt Date: 20160818
  Transmission Date: 20161109
  Serious: Yes (Hospitalization, Other)
  Sender: FDA-Public Use
  Company Number: None

PATIENT
  Age: 63 Year
  Sex: Female
  Weight: 64.41 kg

DRUGS (1)
  1. LANTUS [Suspect]
     Active Substance: INSULIN GLARGINE
     Indication: DIABETES MELLITUS
     Dosage: LANTUS SOLOSTAR INSULIN GLARGINE 100 ML?1 INJECTION - IN THE MORNING - GIVEN INTO/UNDER THE SKIN
     Route: 058
     Dates: start: 20130506, end: 20160607

REACTIONS (7)
  - Loss of consciousness [None]
  - Pain [None]
  - Refusal of treatment by patient [None]
  - Depression [None]
  - Hypertrichosis [None]
  - Weight increased [None]
  - Supraventricular tachycardia [None]

NARRATIVE: CASE EVENT DATE: 20141202
